FAERS Safety Report 7997792-1 (Version None)
Quarter: 2011Q4

REPORT INFORMATION
  Report Type: 
  Country: None (occurrence: None)
  Receive Date: 20111221
  Receipt Date: 20111209
  Transmission Date: 20120403
  Serious: Yes (Hospitalization, Other)
  Sender: FDA-Public Use
  Company Number: JP-PFIZER INC-2011239685

PATIENT
  Age: 82 Year
  Sex: Male
  Weight: 87 kg

DRUGS (11)
  1. NEUQUINON [Concomitant]
     Indication: CARDIAC FAILURE CONGESTIVE
     Dosage: UNK
  2. LEVOTHYROXINE SODIUM [Concomitant]
     Indication: HYPOTHYROIDISM
     Dosage: UNK
  3. OPALMON [Concomitant]
     Indication: LUMBAR SPINAL STENOSIS
     Dosage: UNK
  4. ADALAT [Concomitant]
     Indication: HYPERTENSION
     Dosage: UNK
  5. ALDACTONE [Concomitant]
     Indication: OEDEMA DUE TO CARDIAC DISEASE
     Dosage: UNK
  6. LIVALO [Concomitant]
     Indication: HYPERLIPIDAEMIA
     Dosage: UNK
  7. INDAPAMIDE [Concomitant]
     Indication: HYPERTENSION
     Dosage: UNK
  8. BOUIOUGITOU [Concomitant]
  9. MICARDIS [Concomitant]
     Indication: HYPERTENSION
     Dosage: UNK
  10. CELECOXIB [Suspect]
     Indication: OSTEOARTHRITIS
     Dosage: 100 MG, 2X/DAY
     Route: 048
     Dates: start: 20080714, end: 20081122
  11. TAMSULOSIN HCL [Concomitant]
     Indication: BENIGN PROSTATIC HYPERPLASIA
     Dosage: UNK

REACTIONS (2)
  - CEREBRAL INFARCTION [None]
  - CAROTID ARTERY STENOSIS [None]
